FAERS Safety Report 8993593 (Version 1)
Quarter: 2013Q1

REPORT INFORMATION
  Report Type: Spontaneous
  Country: FR (occurrence: FR)
  Receive Date: 20130102
  Receipt Date: 20130102
  Transmission Date: 20140127
  Serious: Yes (Life-Threatening, Hospitalization)
  Sender: FDA-Public Use
  Company Number: FR-ROCHE-1132356

PATIENT
  Sex: Male

DRUGS (12)
  1. MABTHERA [Suspect]
     Indication: LYMPHOMA
     Route: 042
     Dates: start: 20110811, end: 20120712
  2. ZELITREX [Concomitant]
     Route: 048
  3. BACTRIM FORTE [Concomitant]
     Route: 048
  4. FOZITEC [Concomitant]
     Route: 048
  5. ALLOPURINOL [Concomitant]
     Route: 048
  6. INEGY [Concomitant]
     Dosage: 10MG/40MG
     Route: 048
  7. ZOLOFT [Concomitant]
     Route: 048
  8. CELIPROLOL [Concomitant]
     Route: 048
  9. FLUDEX [Concomitant]
     Dosage: 1.5MG
     Route: 048
  10. AMLOR [Concomitant]
     Route: 065
  11. SODIUM BICARBONATE [Concomitant]
     Dosage: ONE TABLET IN THE MORNING AND 2 TABLETS AT LUNCHTIME AND EVENING
     Route: 065
  12. VITAMIN C [Concomitant]

REACTIONS (1)
  - Progressive multifocal leukoencephalopathy [Recovered/Resolved with Sequelae]
